FAERS Safety Report 4855919-4 (Version None)
Quarter: 2005Q4

REPORT INFORMATION
  Report Type: 
  Country: None (occurrence: None)
  Receive Date: 20051216
  Receipt Date: 20051125
  Transmission Date: 20060501
  Serious: Yes (Death, Life-Threatening)
  Sender: FDA-Public Use
  Company Number: FR-GLAXOSMITHKLINE-B0402290A

PATIENT
  Age: 73 Year
  Sex: Female
  Weight: 75 kg

DRUGS (10)
  1. ARIXTRA [Suspect]
     Indication: THROMBOSIS PROPHYLAXIS
     Dosage: 2.5MG PER DAY
     Route: 058
     Dates: start: 20051021, end: 20051023
  2. PERFALGAN [Concomitant]
     Dates: start: 20051020, end: 20051020
  3. PROFENID [Concomitant]
     Dates: start: 20051020, end: 20051020
  4. ALLOPURINOL [Concomitant]
     Dosage: 300MG PER DAY
  5. ISOBAR [Concomitant]
     Dosage: 1UNIT IN THE MORNING
  6. PROPRANOLOL [Concomitant]
     Dosage: 20MG THREE TIMES PER DAY
  7. OMEPRAZOLE [Concomitant]
     Dosage: 20MG AT NIGHT
  8. TEMESTA [Concomitant]
     Dosage: 2.5MG AT NIGHT
  9. RELVENE [Concomitant]
  10. XATRAL [Concomitant]
     Dosage: 10MG PER DAY

REACTIONS (8)
  - ANAEMIA [None]
  - BRAIN HERNIATION [None]
  - CEREBRAL HAEMORRHAGE [None]
  - COMA [None]
  - CONFUSIONAL STATE [None]
  - INCISION SITE HAEMORRHAGE [None]
  - POST PROCEDURAL HAEMATOMA [None]
  - SUBDURAL HAEMATOMA [None]
